FAERS Safety Report 24565902 (Version 3)
Quarter: 2025Q4

REPORT INFORMATION
  Report Type: Spontaneous
  Country: JP (occurrence: JP)
  Receive Date: 20241030
  Receipt Date: 20251126
  Transmission Date: 20260118
  Serious: Yes (Other)
  Sender: ELI LILLY AND COMPANY
  Company Number: JP-ELI_LILLY_AND_COMPANY-JP202410015154

PATIENT
  Age: 75 Year
  Sex: Female

DRUGS (1)
  1. RETEVMO [Suspect]
     Active Substance: SELPERCATINIB
     Indication: Non-small cell lung cancer stage IIIB
     Dosage: 320 MG, UNKNOWN
     Route: 048

REACTIONS (6)
  - Pulmonary toxicity [Recovering/Resolving]
  - Activities of daily living decreased [Unknown]
  - Hepatic function abnormal [Recovering/Resolving]
  - Thrombocytopenia [Recovering/Resolving]
  - Hypersensitivity [Unknown]
  - Pyrexia [Recovering/Resolving]
